FAERS Safety Report 5069731-7 (Version None)
Quarter: 2006Q3

REPORT INFORMATION
  Report Type: 
  Country: None (occurrence: None)
  Receive Date: 20060803
  Receipt Date: 20060728
  Transmission Date: 20061208
  Serious: Yes (Death)
  Sender: FDA-Public Use
  Company Number: TR-BRISTOL-MYERS SQUIBB COMPANY-13462098

PATIENT
  Age: 8 Year
  Sex: Male

DRUGS (4)
  1. CCNU [Suspect]
     Indication: EPENDYMOMA
  2. VINCRISTINE SULFATE [Suspect]
     Indication: EPENDYMOMA
  3. PROCARBAZINE [Suspect]
     Indication: EPENDYMOMA
  4. RADIATION THERAPY [Suspect]
     Indication: EPENDYMOMA

REACTIONS (2)
  - MYELODYSPLASTIC SYNDROME [None]
  - TREATMENT RELATED SECONDARY MALIGNANCY [None]
